FAERS Safety Report 7328485-1 (Version None)
Quarter: 2011Q1

REPORT INFORMATION
  Report Type: 
  Country: None (occurrence: None)
  Receive Date: 20110303
  Receipt Date: 20110114
  Transmission Date: 20110831
  Serious: Yes (Other)
  Sender: FDA-Public Use
  Company Number: GB-JNJFOC-20110205702

PATIENT

DRUGS (2)
  1. LITHIUM [Suspect]
     Indication: AFFECTIVE DISORDER
     Route: 065
  2. HALOPERIDOL [Suspect]
     Indication: AFFECTIVE DISORDER
     Route: 065

REACTIONS (1)
  - PSYCHIATRIC EVALUATION ABNORMAL [None]
